FAERS Safety Report 9301270 (Version 1)
Quarter: 2013Q2

REPORT INFORMATION
  Report Type: Spontaneous
  Country: IT (occurrence: IT)
  Receive Date: 20130521
  Receipt Date: 20130521
  Transmission Date: 20140414
  Serious: Yes (Hospitalization)
  Sender: FDA-Public Use
  Company Number: IT-GLAXOSMITHKLINE-B0893032A

PATIENT
  Age: 56 Year
  Sex: Male

DRUGS (4)
  1. ALKERAN [Suspect]
     Indication: PLASMA CELL MYELOMA
     Route: 065
     Dates: start: 20130327, end: 20130327
  2. LEVOFLOXACIN [Suspect]
     Indication: PLASMA CELL MYELOMA
     Dosage: 500MG PER DAY
     Route: 048
     Dates: start: 20130330, end: 20130401
  3. LYRICA [Concomitant]
     Route: 048
     Dates: start: 20130101, end: 20130401
  4. LANSOPRAZOLE [Concomitant]
     Dates: start: 20130101, end: 20130401

REACTIONS (2)
  - Skin exfoliation [Recovered/Resolved]
  - Rash morbilliform [Recovered/Resolved]
